FAERS Safety Report 12485293 (Version 1)
Quarter: 2016Q2

REPORT INFORMATION
  Report Type: Spontaneous
  Country: US (occurrence: US)
  Receive Date: 20160621
  Receipt Date: 20160621
  Transmission Date: 20160815
  Serious: Yes (Other)
  Sender: FDA-Public Use
  Company Number: US-ASTRAZENECA-2016SE64845

PATIENT
  Age: 97 Year
  Sex: Female
  Weight: 68.5 kg

DRUGS (7)
  1. BUDESONIDE. [Suspect]
     Active Substance: BUDESONIDE
     Dosage: UNKNOWN
     Route: 055
     Dates: end: 20160518
  2. BROVANA [Suspect]
     Active Substance: ARFORMOTEROL TARTRATE
     Indication: BRONCHITIS CHRONIC
     Dosage: 15MCGL2ML
     Route: 055
  3. PLAVIX [Concomitant]
     Active Substance: CLOPIDOGREL BISULFATE
  4. BROVANA [Suspect]
     Active Substance: ARFORMOTEROL TARTRATE
     Indication: EMPHYSEMA
     Dosage: 15MCGL2ML
     Route: 055
  5. FLUTICASONE PROPIONATE. [Suspect]
     Active Substance: FLUTICASONE PROPIONATE
     Route: 045
  6. ALBUTEROL. [Concomitant]
     Active Substance: ALBUTEROL
  7. UNSPECIFIED POWDER MEDICATION [Concomitant]

REACTIONS (16)
  - Aphonia [Not Recovered/Not Resolved]
  - Increased viscosity of bronchial secretion [Not Recovered/Not Resolved]
  - Cough [Not Recovered/Not Resolved]
  - Basal cell carcinoma [Unknown]
  - Vomiting [Not Recovered/Not Resolved]
  - Retching [Not Recovered/Not Resolved]
  - Otorrhoea [Not Recovered/Not Resolved]
  - Rash [Unknown]
  - Productive cough [Not Recovered/Not Resolved]
  - Rhinorrhoea [Not Recovered/Not Resolved]
  - Weight decreased [Unknown]
  - Sputum discoloured [Not Recovered/Not Resolved]
  - Haemoptysis [Unknown]
  - Pyrexia [Unknown]
  - Necrotising ulcerative gingivostomatitis [Not Recovered/Not Resolved]
  - Nausea [Not Recovered/Not Resolved]
